FAERS Safety Report 5756553-4 (Version None)
Quarter: 2008Q2

REPORT INFORMATION
  Report Type: 
  Country: None (occurrence: None)
  Receive Date: 20080603
  Receipt Date: 20080522
  Transmission Date: 20081010
  Serious: Yes (Death)
  Sender: FDA-Public Use
  Company Number: PHHO2008TR06581

PATIENT
  Sex: Male
  Weight: 85 kg

DRUGS (3)
  1. AMN107 AMN+ [Suspect]
     Indication: CHRONIC MYELOID LEUKAEMIA
     Dosage: 800 MG DAILY
     Dates: start: 20071201, end: 20080501
  2. AMN107 AMN+ [Suspect]
     Indication: ACUTE MYELOID LEUKAEMIA
  3. HYDREA [Concomitant]

REACTIONS (3)
  - CARDIO-RESPIRATORY ARREST [None]
  - CHRONIC LYMPHOCYTIC LEUKAEMIA [None]
  - DRUG INEFFECTIVE [None]
